FAERS Safety Report 7222376-2 (Version None)
Quarter: 2011Q1

REPORT INFORMATION
  Report Type: 
  Country: None (occurrence: None)
  Receive Date: 20110112
  Receipt Date: 20101215
  Transmission Date: 20110831
  Serious: No
  Sender: FDA-Public Use
  Company Number: US-PFIZER INC-2011005902

PATIENT

DRUGS (2)
  1. ADVIL [Suspect]
  2. ADVIL PM [Suspect]

REACTIONS (1)
  - PRURITUS [None]
